FAERS Safety Report 8588812-4 (Version None)
Quarter: 2012Q3

REPORT INFORMATION
  Report Type: 
  Country: None (occurrence: None)
  Receive Date: 20120813
  Receipt Date: 20120802
  Transmission Date: 20120928
  Serious: Yes (Other)
  Sender: FDA-Public Use
  Company Number: ES-SANOFI-AVENTIS-2012SA051598

PATIENT
  Age: 50 Year
  Sex: Male
  Weight: 50 kg

DRUGS (5)
  1. CYTARABINE [Suspect]
     Indication: NON-HODGKIN'S LYMPHOMA
     Dosage: FREQ: EVERY 4 DAYS; FOR 30 MIN
     Route: 041
     Dates: start: 20120410, end: 20120414
  2. VORICONAZOLE [Concomitant]
     Indication: PROPHYLAXIS
     Route: 048
     Dates: start: 20111024
  3. CASPOFUNGIN ACETATE [Concomitant]
     Indication: PROPHYLAXIS
     Dates: start: 20111230
  4. FASTURTEC [Suspect]
     Indication: NON-HODGKIN'S LYMPHOMA
     Dosage: FREQ.: EVERY 4 DAYS
     Route: 042
     Dates: start: 20120410, end: 20120414
  5. RANITIDINE HCL [Concomitant]
     Indication: PROPHYLAXIS
     Route: 048
     Dates: start: 20111230

REACTIONS (1)
  - HEPATITIS CHOLESTATIC [None]
